FAERS Safety Report 4788363-9 (Version None)
Quarter: 2005Q4

REPORT INFORMATION
  Report Type: 
  Country: None (occurrence: None)
  Receive Date: 20051005
  Receipt Date: 20050923
  Transmission Date: 20060501
  Serious: Yes (Hospitalization)
  Sender: FDA-Public Use
  Company Number: DE-BRISTOL-MYERS SQUIBB COMPANY-13120654

PATIENT
  Age: 71 Year
  Sex: Male

DRUGS (8)
  1. CISPLATIN [Suspect]
     Indication: SMALL CELL LUNG CANCER STAGE UNSPECIFIED
     Route: 042
     Dates: start: 20050710, end: 20050710
  2. TOPOTECAN HCL [Suspect]
     Indication: SMALL CELL LUNG CANCER STAGE UNSPECIFIED
     Route: 042
     Dates: start: 20050706, end: 20050710
  3. THYROXINE [Concomitant]
  4. DUSODRIL [Concomitant]
  5. ASPIRIN [Concomitant]
  6. DYNORM [Concomitant]
  7. PANTOZOL [Concomitant]
  8. SIMVASTATIN [Concomitant]

REACTIONS (1)
  - PETECHIAE [None]
